FAERS Safety Report 17318252 (Version 1)
Quarter: 2020Q1

REPORT INFORMATION
  Report Type: Spontaneous
  Country: JP (occurrence: JP)
  Receive Date: 20200124
  Receipt Date: 20200124
  Transmission Date: 20200409
  Serious: Yes (Other)
  Sender: FDA-Public Use
  Company Number: JP-PFIZER INC-2020030250

PATIENT
  Age: 5 Decade
  Sex: Female

DRUGS (7)
  1. TRIAZOLAM. [Suspect]
     Active Substance: TRIAZOLAM
     Dosage: 50 MG, UNK
  2. CHLORPROMAZINE. [Suspect]
     Active Substance: CHLORPROMAZINE
     Dosage: 52 DF, UNK
  3. LITHIUM CARBONATE. [Suspect]
     Active Substance: LITHIUM CARBONATE
     Dosage: 100 MG, UNK
  4. QUAZEPAM. [Suspect]
     Active Substance: QUAZEPAM
     Dosage: 23 DF, UNK
  5. PROMETHAZINE [Suspect]
     Active Substance: PROMETHAZINE HYDROCHLORIDE
     Dosage: 34 DF, UNK
  6. PHENOBAL [PHENOBARBITAL] [Suspect]
     Active Substance: PHENOBARBITAL
     Dosage: 72 DF, UNK
  7. SODIUM VALPROATE [Suspect]
     Active Substance: VALPROATE SODIUM
     Dosage: 200 MG, UNK

REACTIONS (3)
  - Diabetes insipidus [Recovering/Resolving]
  - Toxicity to various agents [Recovering/Resolving]
  - Hyperammonaemia [Recovering/Resolving]
